FAERS Safety Report 18365010 (Version 23)
Quarter: 2025Q2

REPORT INFORMATION
  Report Type: Report from Study
  Country: US (occurrence: US)
  Receive Date: 20201009
  Receipt Date: 20250516
  Transmission Date: 20250717
  Serious: Yes (Other)
  Sender: TAKEDA
  Company Number: US-SHIRE-US202032919

PATIENT
  Sex: Female
  Weight: 109 kg

DRUGS (23)
  1. HUMAN IMMUNOGLOBULIN G [Suspect]
     Active Substance: HUMAN IMMUNOGLOBULIN G
     Indication: Immune system disorder
     Dosage: 20 GRAM, Q2WEEKS
     Dates: start: 20200401
  2. HUMAN IMMUNOGLOBULIN G [Suspect]
     Active Substance: HUMAN IMMUNOGLOBULIN G
     Indication: Primary immunodeficiency syndrome
     Dosage: 20 GRAM, Q2WEEKS
  3. HUMAN IMMUNOGLOBULIN G [Suspect]
     Active Substance: HUMAN IMMUNOGLOBULIN G
     Indication: Hypergammaglobulinaemia
  4. LIDOCAINE\PRILOCAINE [Suspect]
     Active Substance: LIDOCAINE\PRILOCAINE
     Indication: Product used for unknown indication
  5. ACETAMINOPHEN [Concomitant]
     Active Substance: ACETAMINOPHEN
  6. ATORVASTATIN CALCIUM [Concomitant]
     Active Substance: ATORVASTATIN CALCIUM
  7. PLAQUENIL [Concomitant]
     Active Substance: HYDROXYCHLOROQUINE SULFATE
  8. CLARITIN [Concomitant]
     Active Substance: LORATADINE
  9. PROTONIX [Concomitant]
     Active Substance: PANTOPRAZOLE SODIUM
  10. NORETHINDRONE [Concomitant]
     Active Substance: NORETHINDRONE
  11. LOSARTAN POTASSIUM [Concomitant]
     Active Substance: LOSARTAN POTASSIUM
  12. ASPIRIN [Concomitant]
     Active Substance: ASPIRIN
  13. VITAMIN B [Concomitant]
     Active Substance: VITAMIN B
  14. APPLE CIDER VINEGAR [Concomitant]
     Active Substance: APPLE CIDER VINEGAR
  15. DIPHENHYDRAMINE HYDROCHLORIDE [Concomitant]
     Active Substance: DIPHENHYDRAMINE HYDROCHLORIDE
  16. VITAMIN D3 [Concomitant]
     Active Substance: CHOLECALCIFEROL
  17. AZITHROMYCIN [Concomitant]
     Active Substance: AZITHROMYCIN
  18. DIPHENHYDRAMINE [Concomitant]
     Active Substance: DIPHENHYDRAMINE
  19. EPINEPHRINE [Concomitant]
     Active Substance: EPINEPHRINE
  20. VITAMIN B12 [Concomitant]
     Active Substance: CYANOCOBALAMIN
  21. HEATHER [Concomitant]
     Active Substance: NORETHINDRONE
  22. ATORVASTATIN [Concomitant]
     Active Substance: ATORVASTATIN
  23. LOSARTAN [Concomitant]
     Active Substance: LOSARTAN

REACTIONS (25)
  - Systemic lupus erythematosus rash [Unknown]
  - Rash pruritic [Unknown]
  - Fungal infection [Unknown]
  - Cystitis [Unknown]
  - Lymphoedema [Unknown]
  - Gastroenteritis viral [Unknown]
  - Nasopharyngitis [Recovering/Resolving]
  - Sinus disorder [Recovering/Resolving]
  - COVID-19 [Recovering/Resolving]
  - Needle issue [Unknown]
  - Peripheral swelling [Unknown]
  - Aphonia [Unknown]
  - Eye infection [Unknown]
  - Urinary tract infection [Unknown]
  - Inappropriate schedule of product administration [Unknown]
  - Drug ineffective [Unknown]
  - Viral infection [Unknown]
  - Sinusitis [Unknown]
  - Upper respiratory tract infection [Unknown]
  - Infusion site rash [Unknown]
  - Rash [Unknown]
  - Infusion site erythema [Unknown]
  - Injection site pain [Unknown]
  - Infusion site pruritus [Unknown]
  - Erythema [Unknown]
